FAERS Safety Report 11334795 (Version 2)
Quarter: 2015Q4

REPORT INFORMATION
  Report Type: Spontaneous
  Country: US (occurrence: US)
  Receive Date: 20150804
  Receipt Date: 20151110
  Transmission Date: 20160304
  Serious: No
  Sender: FDA-Public Use
  Company Number: US-009507513-1507USA012608

PATIENT
  Sex: Female
  Weight: 61.68 kg

DRUGS (1)
  1. NEXPLANON [Suspect]
     Active Substance: ETONOGESTREL
     Dosage: UNK
     Route: 059
     Dates: start: 20140206, end: 20150727

REACTIONS (2)
  - No adverse event [Unknown]
  - Device breakage [Recovered/Resolved]
